FAERS Safety Report 15311503 (Version 3)
Quarter: 2018Q4

REPORT INFORMATION
  Report Type: Spontaneous
  Country: US (occurrence: US)
  Receive Date: 20180823
  Receipt Date: 20181112
  Transmission Date: 20190204
  Serious: Yes (Other)
  Sender: FDA-Public Use
  Company Number: US-PFIZER INC-2018335908

PATIENT
  Age: 77 Year
  Sex: Male
  Weight: 79.37 kg

DRUGS (3)
  1. GENOTROPIN MQ [Suspect]
     Active Substance: SOMATROPIN
     Indication: HYPOPITUITARISM
     Dosage: 0.4 MG, DAILY
     Dates: start: 20080219
  2. GENOTROPIN MQ [Suspect]
     Active Substance: SOMATROPIN
     Indication: HORMONE REPLACEMENT THERAPY
     Dosage: 0.4 MG, 1X/DAY
     Dates: start: 2000
  3. GENOTROPIN MQ [Suspect]
     Active Substance: SOMATROPIN
     Indication: GROWTH HORMONE DEFICIENCY

REACTIONS (4)
  - Skin cancer [Unknown]
  - Intentional dose omission [Unknown]
  - Weight increased [Unknown]
  - Squamous cell carcinoma [Unknown]

NARRATIVE: CASE EVENT DATE: 201807
